FAERS Safety Report 11135475 (Version 1)
Quarter: 2015Q2

REPORT INFORMATION
  Report Type: Spontaneous
  Country: US (occurrence: None)
  Receive Date: 20150522
  Receipt Date: 20150522
  Transmission Date: 20150821
  Serious: Yes (Disabling)
  Sender: FDA-Public Use
  Company Number: None

PATIENT
  Age: 52 Year
  Sex: Female
  Weight: 72.58 kg

DRUGS (2)
  1. NUVIGIL [Concomitant]
     Active Substance: ARMODAFINIL
  2. AZELASTINE HCL [Suspect]
     Active Substance: AZELASTINE HYDROCHLORIDE
     Indication: HYPERSENSITIVITY
     Route: 055
     Dates: start: 20150514, end: 20150518

REACTIONS (10)
  - Fatigue [None]
  - Confusional state [None]
  - Weight increased [None]
  - Dizziness [None]
  - Muscle fatigue [None]
  - Myalgia [None]
  - Arthralgia [None]
  - Tremor [None]
  - Depression [None]
  - Chest discomfort [None]

NARRATIVE: CASE EVENT DATE: 20150514
